FAERS Safety Report 8197714-7 (Version None)
Quarter: 2012Q1

REPORT INFORMATION
  Report Type: 
  Country: None (occurrence: None)
  Receive Date: 20120309
  Receipt Date: 20120307
  Transmission Date: 20120608
  Serious: Yes (Other)
  Sender: FDA-Public Use
  Company Number: US-PFIZER INC-2012061345

PATIENT
  Sex: Female
  Weight: 72.562 kg

DRUGS (3)
  1. GABAPENTIN [Suspect]
     Indication: NEUROPATHY PERIPHERAL
     Dosage: ONE CAPSULE 300 MG MORNING AND  THREE CAPSULES OF 300 MG NIGHT
     Route: 048
     Dates: start: 20110101
  2. OXYBUTYNIN [Concomitant]
     Indication: URINARY INCONTINENCE
     Dosage: 5 MG, DAILY
  3. VITAMIN D [Concomitant]
     Dosage: UNK

REACTIONS (3)
  - FATIGUE [None]
  - DIPLOPIA [None]
  - CATARACT [None]
